FAERS Safety Report 9619781 (Version 1)
Quarter: 2013Q4

REPORT INFORMATION
  Report Type: Spontaneous
  Country: DE (occurrence: DE)
  Receive Date: 20131014
  Receipt Date: 20131014
  Transmission Date: 20140711
  Serious: Yes (Other)
  Sender: FDA-Public Use
  Company Number: DE-GLAXOSMITHKLINE-B0929971A

PATIENT
  Age: 56 Year
  Sex: Female
  Weight: 82 kg

DRUGS (5)
  1. CEFUROXIM AXETIL [Suspect]
     Indication: INFECTION
     Route: 048
     Dates: start: 20130809, end: 20130817
  2. FLUCONAZOLE [Suspect]
     Indication: PRODUCT USED FOR UNKNOWN INDICATION
     Route: 048
     Dates: end: 20130817
  3. NOVAMINSULFON [Concomitant]
     Route: 065
     Dates: end: 20130817
  4. EUTHYROX [Concomitant]
     Route: 065
  5. PANTOPRAZOL [Concomitant]
     Route: 065
     Dates: end: 20130817

REACTIONS (1)
  - Hepatic enzyme increased [Recovered/Resolved]
